FAERS Safety Report 8997760 (Version 1)
Quarter: 2013Q1

REPORT INFORMATION
  Report Type: Report from Study
  Country: US (occurrence: US)
  Receive Date: 20130104
  Receipt Date: 20130104
  Transmission Date: 20140127
  Serious: Yes (Other)
  Sender: FDA-Public Use
  Company Number: US-ROCHE-1175254

PATIENT
  Age: 65 Year
  Sex: Male

DRUGS (15)
  1. RANIBIZUMAB [Suspect]
     Indication: DIABETIC RETINAL OEDEMA
     Route: 050
     Dates: start: 20090213
  2. RANIBIZUMAB [Suspect]
     Route: 050
     Dates: start: 20100305
  3. ENALAPRIL [Concomitant]
     Route: 065
     Dates: start: 2004
  4. COREG [Concomitant]
     Route: 065
     Dates: start: 2002
  5. LASIX [Concomitant]
     Route: 065
     Dates: start: 1996
  6. GLYBURIDE [Concomitant]
     Route: 065
     Dates: start: 1990
  7. INSULIN [Concomitant]
     Route: 065
     Dates: start: 2003
  8. MULTIVITAMIN [Concomitant]
     Route: 065
     Dates: start: 1992
  9. VITAMIN B [Concomitant]
     Route: 065
     Dates: start: 1992
  10. VITAMIN C [Concomitant]
     Route: 065
     Dates: start: 1992
  11. METFORMIN [Concomitant]
     Route: 065
     Dates: start: 2010
  12. NOVOLOG [Concomitant]
     Route: 065
     Dates: start: 2010
  13. LIPITOR [Concomitant]
     Route: 065
     Dates: start: 2011
  14. SYNTHROID [Concomitant]
     Route: 065
     Dates: start: 2011
  15. ALDACTONE [Concomitant]
     Route: 065
     Dates: start: 201112

REACTIONS (1)
  - Visual acuity reduced [Unknown]
